FAERS Safety Report 26090818 (Version 3)
Quarter: 2025Q4

REPORT INFORMATION
  Report Type: Report from Study
  Country: US (occurrence: US)
  Receive Date: 20251126
  Receipt Date: 20251218
  Transmission Date: 20260117
  Serious: Yes (Hospitalization, Other)
  Sender: ACADIA PHARMACEUTICALS
  Company Number: US-ACADIA PHARMACEUTICALS INC.-ACA-2025-PIM-012584

PATIENT
  Sex: Male

DRUGS (1)
  1. NUPLAZID [Suspect]
     Active Substance: PIMAVANSERIN TARTRATE
     Indication: Parkinson^s disease psychosis
     Dosage: 34 MILLIGRAM, QD
     Route: 048

REACTIONS (7)
  - Cardiac disorder [Not Recovered/Not Resolved]
  - Monoplegia [Not Recovered/Not Resolved]
  - Hallucination [Not Recovered/Not Resolved]
  - Asthenia [Unknown]
  - Anger [Not Recovered/Not Resolved]
  - Fear [Not Recovered/Not Resolved]
  - Disorientation [Not Recovered/Not Resolved]
